FAERS Safety Report 9291358 (Version 1)
Quarter: 2013Q2

REPORT INFORMATION
  Report Type: Spontaneous
  Country: US (occurrence: US)
  Receive Date: 20130515
  Receipt Date: 20130515
  Transmission Date: 20140414
  Serious: Yes (Congenital Anomaly, Other)
  Sender: FDA-Public Use
  Company Number: US-TEVA-284253USA

PATIENT
  Age: 1 Day
  Sex: Male

DRUGS (1)
  1. COPAXONE [Suspect]
     Route: 065

REACTIONS (5)
  - Craniosynostosis [Unknown]
  - Congenital hydrocephalus [Unknown]
  - Polydactyly [Unknown]
  - Cerebral ventricle dilatation [Unknown]
  - Psychomotor skills impaired [Unknown]
